FAERS Safety Report 8071966-6 (Version None)
Quarter: 2012Q1

REPORT INFORMATION
  Report Type: 
  Country: None (occurrence: None)
  Receive Date: 20120124
  Receipt Date: 20120124
  Transmission Date: 20120608
  Serious: Yes (Life-Threatening)
  Sender: FDA-Public Use
  Company Number: None

PATIENT
  Age: 60 Year
  Sex: Female

DRUGS (1)
  1. TYSABRI [Suspect]
     Indication: MULTIPLE SCLEROSIS
     Dosage: 300 MG MONTHLY IV
     Route: 042
     Dates: start: 20111101, end: 20111201

REACTIONS (5)
  - NAUSEA [None]
  - OXYGEN SATURATION DECREASED [None]
  - DYSPNOEA [None]
  - ANAPHYLACTIC REACTION [None]
  - URTICARIA [None]
